FAERS Safety Report 23969836 (Version 3)
Quarter: 2025Q3

REPORT INFORMATION
  Report Type: Spontaneous
  Country: EU (occurrence: EU)
  Receive Date: 20240613
  Receipt Date: 20250810
  Transmission Date: 20251021
  Serious: Yes (Other)
  Sender: ALEXION PHARMACEUTICALS
  Company Number: None

PATIENT
  Age: 60 Year
  Sex: Female
  Weight: 90 kg

DRUGS (5)
  1. IMFINZI [Suspect]
     Active Substance: DURVALUMAB
     Indication: Cholangiocarcinoma
     Dates: start: 20230626, end: 20240402
  2. FENTANYL [Concomitant]
     Active Substance: FENTANYL
  3. Oxinorm [Concomitant]
  4. ACETAMINOPHEN [Concomitant]
     Active Substance: ACETAMINOPHEN
  5. URSODIOL [Concomitant]
     Active Substance: URSODIOL

REACTIONS (4)
  - Aplasia pure red cell [Not Recovered/Not Resolved]
  - Normocytic anaemia [Unknown]
  - Asthenia [Unknown]
  - Anaemia [Unknown]

NARRATIVE: CASE EVENT DATE: 20240223
